FAERS Safety Report 14846183 (Version 1)
Quarter: 2018Q2

REPORT INFORMATION
  Report Type: Spontaneous
  Country: US (occurrence: US)
  Receive Date: 20180504
  Receipt Date: 20180504
  Transmission Date: 20180711
  Serious: No
  Sender: FDA-Public Use
  Company Number: US-TEVA-794367ACC

PATIENT
  Sex: Female

DRUGS (2)
  1. NEOMYCIN W/POLYMYXIN B/PRAMOXINE [Suspect]
     Active Substance: NEOMYCIN\POLYMYXIN B\PRAMOXINE HYDROCHLORIDE
  2. NEOMYCIN W/POLYMYXIN B/PRAMOXINE [Suspect]
     Active Substance: NEOMYCIN\POLYMYXIN B\PRAMOXINE HYDROCHLORIDE

REACTIONS (2)
  - Ear swelling [Recovered/Resolved]
  - Eye swelling [Recovered/Resolved]
